FAERS Safety Report 8483243-X (Version None)
Quarter: 2012Q3

REPORT INFORMATION
  Report Type: 
  Country: None (occurrence: None)
  Receive Date: 20120702
  Receipt Date: 20120625
  Transmission Date: 20120928
  Serious: Yes (Hospitalization)
  Sender: FDA-Public Use
  Company Number: PHHO2010JP02807

PATIENT
  Sex: Female
  Weight: 54 kg

DRUGS (18)
  1. PACLITAXEL [Suspect]
     Dosage: UNK
     Dates: start: 20100329, end: 20101102
  2. FUROSEMIDE [Suspect]
  3. CEFAZOLIN SODIUM [Concomitant]
  4. BLINDED NO TREATMENT RECEIVED [Suspect]
     Indication: BREAST CANCER METASTATIC
     Dosage: CODE NOT BROKEN
     Route: 048
     Dates: start: 20091222, end: 20101207
  5. COMPARATOR TRASTUZUMAB [Suspect]
     Indication: BREAST CANCER METASTATIC
     Dosage: 215 MG, UNK
     Dates: end: 20101207
  6. SULFAMETHOXAZOLE AND TRIMETHOPRIM [Suspect]
  7. PREDNISOLONE SODIUM SUCCINATE INJ [Concomitant]
  8. LOXOPROFEN SODIUM [Concomitant]
     Indication: PAIN
  9. AMITRIPTYLINE HCL [Concomitant]
  10. BLINDED PLACEBO [Suspect]
     Indication: BREAST CANCER METASTATIC
     Dosage: CODE NOT BROKEN
     Route: 048
     Dates: start: 20091222, end: 20101207
  11. AZUNOL [Concomitant]
     Indication: DECUBITUS ULCER
  12. IMIDAPRIL HYDROCHLORIDE [Concomitant]
     Indication: HYPERTENSION
  13. AFINITOR [Suspect]
     Indication: BREAST CANCER METASTATIC
     Dosage: CODE NOT BROKEN
     Route: 048
     Dates: start: 20091222, end: 20101207
  14. VANCOMYCIN [Concomitant]
  15. PACLITAXEL [Suspect]
     Indication: BREAST CANCER METASTATIC
     Dosage: 112 MG, UNK
     Dates: end: 20100315
  16. HIRUDOID [Concomitant]
     Indication: DERMATOSIS
  17. FLAVOXATE HYDROCHLORIDE [Concomitant]
     Indication: POLLAKIURIA
  18. LAXOBERON [Concomitant]
     Indication: CONSTIPATION

REACTIONS (11)
  - C-REACTIVE PROTEIN INCREASED [None]
  - LIVER DISORDER [None]
  - CEREBRAL ISCHAEMIA [None]
  - PLEURAL EFFUSION [None]
  - ASCITES [None]
  - EPISTAXIS [None]
  - HYPERGLYCAEMIA [None]
  - BLOOD POTASSIUM DECREASED [None]
  - ANAEMIA [None]
  - RENAL IMPAIRMENT [None]
  - PNEUMOCYSTIS JIROVECI PNEUMONIA [None]
